FAERS Safety Report 8953288 (Version 2)
Quarter: 2013Q2

REPORT INFORMATION
  Report Type: Spontaneous
  Country: US (occurrence: US)
  Receive Date: 20121206
  Receipt Date: 20130401
  Transmission Date: 20140414
  Serious: Yes (Hospitalization)
  Sender: FDA-Public Use
  Company Number: US-BAYER-2012-126670

PATIENT
  Age: 27 Year
  Sex: Female

DRUGS (7)
  1. YAZ [Suspect]
     Indication: CONTRACEPTION
  2. GIANVI [Suspect]
  3. YASMIN [Suspect]
  4. TOPIRAMATE [Concomitant]
     Dosage: 200 MG, DAILY
  5. MULTIPLE VITAMINS [Concomitant]
     Dosage: DAILY
  6. CETIRIZINE HYDROCHLORIDE [Concomitant]
     Dosage: 10 MG, 1 TABLET PRN
  7. PROAIR HFA [Concomitant]
     Indication: WHEEZING
     Dosage: 2 PUFF(S), Q4HR AS NEEDED
     Route: 048

REACTIONS (6)
  - Pulmonary embolism [None]
  - Pulmonary embolism [None]
  - Deep vein thrombosis [Recovered/Resolved]
  - Injury [None]
  - Pain [None]
  - Pain [None]
